FAERS Safety Report 8766325 (Version 1)
Quarter: 2012Q4

REPORT INFORMATION
  Report Type: 
  Country: KR (occurrence: KR)
  Receive Date: 20120904
  Receipt Date: 20120904
  Transmission Date: 20130627
  Serious: Yes (Other)
  Sender: FDA-Public Use
  Company Number: PHHY2012KR074059

PATIENT
  Age: 46 Year
  Sex: Female

DRUGS (3)
  1. METHYLPREDNISOLONE [Suspect]
     Indication: LUPUS NEPHRITIS
     Dosage: 1 g, UNK
  2. PREDNISOLONE [Suspect]
     Indication: LUPUS NEPHRITIS
     Dosage: 1 mg/kg, UNK
  3. CYCLOPHOSPHAMIDE [Suspect]
     Dosage: 5.75 g, total dose over 15 months

REACTIONS (6)
  - Carotid artery aneurysm [Recovered/Resolved]
  - Intracranial aneurysm [Recovered/Resolved]
  - Bronchopulmonary aspergillosis [Recovered/Resolved]
  - Nodule [Recovered/Resolved]
  - Epistaxis [Recovered/Resolved]
  - Sinusitis [Recovered/Resolved]
